FAERS Safety Report 8405849-6 (Version None)
Quarter: 2012Q2

REPORT INFORMATION
  Report Type: 
  Country: None (occurrence: None)
  Receive Date: 20120604
  Receipt Date: 20120601
  Transmission Date: 20120825
  Serious: No
  Sender: FDA-Public Use
  Company Number: US-PFIZER INC-2012132657

PATIENT
  Sex: Male
  Weight: 95.238 kg

DRUGS (8)
  1. TOPIRAMATE [Concomitant]
     Dosage: UNK
  2. SIMVASTATIN [Concomitant]
     Dosage: UNK
  3. FLOMAX [Concomitant]
     Dosage: UNK
  4. LYRICA [Suspect]
     Indication: POST HERPETIC NEURALGIA
  5. LYRICA [Suspect]
     Indication: HERPES ZOSTER
     Dosage: 100 MG, 3X/DAY
     Route: 048
  6. PROPRANOLOL [Concomitant]
     Dosage: UNK
  7. PRIMIDONE [Concomitant]
     Dosage: UNK
  8. CYMBALTA [Concomitant]
     Dosage: UNK

REACTIONS (2)
  - SOMNOLENCE [None]
  - AMNESIA [None]
